FAERS Safety Report 24587369 (Version 2)
Quarter: 2024Q4

REPORT INFORMATION
  Report Type: Spontaneous
  Country: US (occurrence: US)
  Receive Date: 20241107
  Receipt Date: 20241113
  Transmission Date: 20250115
  Serious: No
  Sender: BRISTOL-MYERS SQUIBB COMPANY
  Company Number: US-BRISTOL-MYERS SQUIBB COMPANY-2024-174157

PATIENT
  Age: 90 Year
  Sex: Male
  Weight: 63.05 kg

DRUGS (1)
  1. REVLIMID [Suspect]
     Active Substance: LENALIDOMIDE
     Indication: Myelodysplastic syndrome
     Dosage: FREQUENCY: ONCE DAILY ON SUNDAY, MONDAY, WEDNESDAY AND FRIDAY OF EACH WEEK
     Route: 048
     Dates: start: 202410

REACTIONS (2)
  - Tongue blistering [Recovering/Resolving]
  - Off label use [Unknown]
